FAERS Safety Report 22184823 (Version 1)
Quarter: 2023Q2

REPORT INFORMATION
  Report Type: Spontaneous
  Country: NO (occurrence: NO)
  Receive Date: 20230407
  Receipt Date: 20230407
  Transmission Date: 20230721
  Serious: Yes (Hospitalization)
  Sender: FDA-Public Use
  Company Number: None

PATIENT
  Age: 80 Year
  Sex: Female

DRUGS (3)
  1. KEYTRUDA [Suspect]
     Active Substance: PEMBROLIZUMAB
     Indication: Lung adenocarcinoma stage IV
     Dosage: UNK
     Dates: start: 20221230
  2. TRELEGY ELLIPTA [Concomitant]
     Active Substance: FLUTICASONE FUROATE\UMECLIDINIUM BROMIDE\VILANTEROL TRIFENATATE
     Dosage: CONTINUED USE OF MEDICINAL PRODUCT
  3. MELATONIN [Concomitant]
     Active Substance: MELATONIN
     Dosage: CONTINUED USE OF MEDICINAL PRODUCT

REACTIONS (2)
  - Optic neuritis [Unknown]
  - Blindness [Unknown]

NARRATIVE: CASE EVENT DATE: 20230310
